FAERS Safety Report 6327149-0 (Version None)
Quarter: 2009Q3

REPORT INFORMATION
  Report Type: 
  Country: None (occurrence: None)
  Receive Date: 20090825
  Receipt Date: 20090820
  Transmission Date: 20100115
  Serious: Yes (Death, Life-Threatening, Hospitalization)
  Sender: FDA-Public Use
  Company Number: B0515274A

PATIENT
  Age: 27 Year
  Sex: Male
  Weight: 63 kg

DRUGS (12)
  1. ARRANON [Suspect]
     Dosage: 1500MGM2 PER DAY
     Route: 042
     Dates: start: 20080324, end: 20080326
  2. KYTRIL [Concomitant]
     Dosage: 3MG PER DAY
     Route: 042
     Dates: start: 20080324, end: 20080326
  3. FUROSEMIDE [Concomitant]
     Route: 042
     Dates: start: 20080325
  4. MAXIPIME [Concomitant]
     Dosage: 4G PER DAY
     Route: 042
     Dates: start: 20080327, end: 20080328
  5. REMINARON [Concomitant]
     Dosage: 2000MG PER DAY
     Route: 042
     Dates: start: 20080328
  6. CALCICOL [Concomitant]
     Dosage: 10ML PER DAY
     Route: 042
     Dates: start: 20080328
  7. PRIMPERAN [Concomitant]
     Dosage: 10MG PER DAY
     Route: 042
     Dates: start: 20080329
  8. OXYCONTIN [Concomitant]
     Dosage: 5MG PER DAY
     Route: 048
  9. NOVAMIN [Concomitant]
     Dosage: 10MG PER DAY
     Route: 048
  10. FLUCONAZOLE [Concomitant]
     Dosage: 200MG PER DAY
     Route: 048
  11. LEVOFLOXACIN [Concomitant]
     Dosage: 300MG PER DAY
     Route: 048
  12. BAKTAR [Concomitant]
     Dosage: 4MG PER DAY
     Route: 048

REACTIONS (6)
  - ACUTE HEPATIC FAILURE [None]
  - ALANINE AMINOTRANSFERASE INCREASED [None]
  - ASPARTATE AMINOTRANSFERASE INCREASED [None]
  - CARDIO-RESPIRATORY ARREST [None]
  - DISSEMINATED INTRAVASCULAR COAGULATION [None]
  - LOSS OF CONSCIOUSNESS [None]
